FAERS Safety Report 14924537 (Version 2)
Quarter: 2018Q3

REPORT INFORMATION
  Report Type: Spontaneous
  Country: GB (occurrence: GB)
  Receive Date: 20180522
  Receipt Date: 20180830
  Transmission Date: 20181010
  Serious: Yes (Other)
  Sender: FDA-Public Use
  Company Number: GB-TEIKOKU PHARMA USA-TPU2018-00340

PATIENT

DRUGS (1)
  1. LIDOCAINE PATCH 5% [Suspect]
     Active Substance: LIDOCAINE
     Indication: FRACTURE PAIN
     Route: 061

REACTIONS (3)
  - Constipation [Unknown]
  - Off label use [Unknown]
  - Delirium [Unknown]
